FAERS Safety Report 13902339 (Version 1)
Quarter: 2017Q3

REPORT INFORMATION
  Report Type: Report from Study
  Country: None (occurrence: AT)
  Receive Date: 20170824
  Receipt Date: 20170824
  Transmission Date: 20171127
  Serious: Yes (Death, Hospitalization)
  Sender: FDA-Public Use
  Company Number: AT-ABBVIE-17K-009-2003696-00

PATIENT
  Age: 80 Year
  Sex: Male

DRUGS (1)
  1. DUODOPA [Suspect]
     Active Substance: CARBIDOPA\LEVODOPA
     Indication: PARKINSON^S DISEASE
     Dosage: 16 H THERAPY:??MD: 10.5 ML??CR DAYTIME: 4.9 ML/H??ED: 3.5 ML
     Route: 050
     Dates: start: 20150513

REACTIONS (3)
  - On and off phenomenon [Recovered/Resolved]
  - Device dislocation [Unknown]
  - Death [Fatal]

NARRATIVE: CASE EVENT DATE: 20170816
